FAERS Safety Report 23762910 (Version 1)
Quarter: 2024Q2

REPORT INFORMATION
  Report Type: Spontaneous
  Country: US (occurrence: None)
  Receive Date: 20240419
  Receipt Date: 20240419
  Transmission Date: 20240716
  Serious: Yes (Other)
  Sender: FDA-Public Use
  Company Number: None

PATIENT
  Age: 21 Year
  Sex: Male
  Weight: 67.5 kg

DRUGS (1)
  1. FINASTERIDE [Suspect]
     Active Substance: FINASTERIDE
     Indication: Alopecia
     Dosage: 1 CAPSULE DAILY ORAL
     Route: 048
     Dates: start: 20210731, end: 20211031

REACTIONS (6)
  - Gynaecomastia [None]
  - Depression [None]
  - Libido decreased [None]
  - Suicidal ideation [None]
  - Blood testosterone decreased [None]
  - Cognitive disorder [None]

NARRATIVE: CASE EVENT DATE: 20210901
